FAERS Safety Report 7867829-9 (Version None)
Quarter: 2011Q4

REPORT INFORMATION
  Report Type: 
  Country: None (occurrence: None)
  Receive Date: 20111025
  Receipt Date: 20111013
  Transmission Date: 20120403
  Serious: Yes (Disabling)
  Sender: FDA-Public Use
  Company Number: 1075583

PATIENT
  Age: 23 Year
  Sex: Female
  Weight: 67.5 kg

DRUGS (10)
  1. ONDANSETRON [Suspect]
     Indication: PRODUCT USED FOR UNKNOWN INDICATION
  2. CEPHALEXIN [Concomitant]
  3. CLOMIPRAMINE HCL [Concomitant]
  4. LORAZEPAM [Concomitant]
  5. METOCLOPRAMIDE [Concomitant]
  6. ERYTHROMYCIN ETHYLSUCCINATE [Concomitant]
  7. CHLORDIAZEPOXIDE [Concomitant]
  8. CYCLIZINE [Concomitant]
  9. GAVISCON [Concomitant]
  10. PROCHLOPERAZINE [Concomitant]

REACTIONS (2)
  - MORBID THOUGHTS [None]
  - MATERNAL EXPOSURE DURING PREGNANCY [None]
